FAERS Safety Report 9096141 (Version 1)
Quarter: 2013Q1

REPORT INFORMATION
  Report Type: Spontaneous
  Country: CN (occurrence: CN)
  Receive Date: 20130207
  Receipt Date: 20130207
  Transmission Date: 20140127
  Serious: Yes (Other)
  Sender: FDA-Public Use
  Company Number: CN-ASTRAZENECA-2013SE07017

PATIENT
  Sex: 0

DRUGS (1)
  1. BUDESONIDE [Suspect]
     Indication: RHINITIS ALLERGIC
     Dosage: 128 PG, TWO TIMES A DAY
     Route: 045

REACTIONS (1)
  - Oedema [Unknown]
